FAERS Safety Report 5513060-1 (Version None)
Quarter: 2007Q4

REPORT INFORMATION
  Report Type: 
  Country: None (occurrence: None)
  Receive Date: 20071112
  Receipt Date: 20070920
  Transmission Date: 20080405
  Serious: No
  Sender: FDA-Public Use
  Company Number: US-ABBOTT-07P-163-0418022-00

PATIENT
  Sex: Female
  Weight: 68.1 kg

DRUGS (2)
  1. TRICOR [Suspect]
     Indication: BLOOD CHOLESTEROL INCREASED
     Route: 048
     Dates: start: 20070801
  2. PARACETAMOL [Concomitant]
     Indication: ARTHRITIS
     Dosage: TWO TABS BID
     Route: 048
     Dates: start: 20070301

REACTIONS (2)
  - HEADACHE [None]
  - MYALGIA [None]
